FAERS Safety Report 16494056 (Version 2)
Quarter: 2019Q2

REPORT INFORMATION
  Report Type: Spontaneous
  Country: US (occurrence: US)
  Receive Date: 20190628
  Receipt Date: 20190628
  Transmission Date: 20190711
  Serious: No
  Sender: FDA-Public Use
  Company Number: US-BAYER-2019-123060

PATIENT
  Age: 76 Year
  Sex: Female
  Weight: 84 kg

DRUGS (2)
  1. GLYCERIN LAXATIVE [Concomitant]
     Active Substance: GLYCERIN
  2. MIRALAX [Suspect]
     Active Substance: POLYETHYLENE GLYCOL 3350
     Indication: GASTROINTESTINAL DISORDER
     Dosage: 1 DF, QD
     Route: 048
     Dates: start: 20190625, end: 20190626

REACTIONS (4)
  - Abdominal pain lower [Unknown]
  - Discomfort [Unknown]
  - Faeces hard [Unknown]
  - Abdominal discomfort [Unknown]
